FAERS Safety Report 11389529 (Version 9)
Quarter: 2025Q4

REPORT INFORMATION
  Report Type: Spontaneous
  Country: EU (occurrence: EU)
  Receive Date: 20150817
  Receipt Date: 20251219
  Transmission Date: 20260118
  Serious: Yes (Hospitalization, Other)
  Sender: BAXTER
  Company Number: EU-BAXTER-2015BAX043802

PATIENT
  Sex: Female

DRUGS (24)
  1. CYCLOPHOSPHAMIDE [Suspect]
     Active Substance: CYCLOPHOSPHAMIDE
     Indication: Invasive ductal breast carcinoma
     Dosage: 1 DF, QCY, 1 CYCLICAL
     Route: 042
  2. CARBOPLATIN [Suspect]
     Active Substance: CARBOPLATIN
     Indication: Invasive ductal breast carcinoma
     Dosage: 1 DF, QCY, 1 CYCLICAL (DRUG START AND STOP DATE: 2008)
     Route: 042
     Dates: start: 2008, end: 2008
  3. CARBOPLATIN [Suspect]
     Active Substance: CARBOPLATIN
     Indication: Metastases to bone
  4. NOVANTRONE [Suspect]
     Active Substance: MITOXANTRONE HYDROCHLORIDE
     Indication: Invasive ductal breast carcinoma
     Dosage: 1 DF, QCY, 1 CYCLICAL
     Route: 065
  5. FLUOROURACIL [Suspect]
     Active Substance: FLUOROURACIL
     Indication: Invasive ductal breast carcinoma
     Dosage: 1 DF, QCY, 1 CYCLICAL
     Route: 065
  6. PACLITAXEL [Suspect]
     Active Substance: PACLITAXEL
     Indication: Invasive ductal breast carcinoma
     Dosage: 1 DF, QCY, 1 CYCLICAL
     Route: 065
     Dates: start: 2008, end: 2008
  7. BEVACIZUMAB [Suspect]
     Active Substance: BEVACIZUMAB
     Indication: Invasive ductal breast carcinoma
     Dosage: 1 DF, QCY, 1 CYCLICAL (THERAPY START AND STOP DATE: 2008)
     Route: 065
     Dates: start: 2008, end: 2008
  8. BEVACIZUMAB [Suspect]
     Active Substance: BEVACIZUMAB
     Indication: Metastases to bone
  9. ZOLEDRONIC ACID [Suspect]
     Active Substance: ZOLEDRONIC ACID
     Indication: Invasive ductal breast carcinoma
     Dosage: 1 DF, QCY
     Route: 042
     Dates: start: 2008, end: 2008
  10. ZOLEDRONIC ACID [Suspect]
     Active Substance: ZOLEDRONIC ACID
     Indication: Metastases to bone
  11. CAPECITABINE [Suspect]
     Active Substance: CAPECITABINE
     Indication: Invasive ductal breast carcinoma
     Dosage: 1 DF, QCY, 1 CYCLICAL (THERAPY START AND STOP DATE: 2008)
     Route: 042
     Dates: start: 2008, end: 2008
  12. DOXORUBICIN HYDROCHLORIDE [Suspect]
     Active Substance: DOXORUBICIN HYDROCHLORIDE
     Indication: Invasive ductal breast carcinoma
     Dosage: 1 DF,QCY, 1 CYCLICAL
     Route: 048
     Dates: start: 2008, end: 2008
  13. DOXORUBICIN HYDROCHLORIDE [Suspect]
     Active Substance: DOXORUBICIN HYDROCHLORIDE
     Indication: Metastases to bone
  14. INIPARIB [Suspect]
     Active Substance: INIPARIB
     Indication: Invasive ductal breast carcinoma
     Dosage: UNK, QCY, 1 CYCLICAL (DRUG START AND STOP DATE: 2008)
     Route: 042
     Dates: start: 2008, end: 2008
  15. INIPARIB [Suspect]
     Active Substance: INIPARIB
     Indication: Metastases to bone
  16. GEMCITABINE [Suspect]
     Active Substance: GEMCITABINE
     Indication: Invasive ductal breast carcinoma
     Dosage: 1 DF, QCY, 1 CYCLICAL (DRUG START AND STOP DATE: 2008)
     Route: 065
     Dates: start: 2008, end: 2008
  17. GEMCITABINE [Suspect]
     Active Substance: GEMCITABINE
     Indication: Metastases to bone
  18. DOCETAXEL [Suspect]
     Active Substance: DOCETAXEL
     Indication: Invasive ductal breast carcinoma
     Dosage: 1 DF, QCY, 1 CYCLICAL (THERAPY START AND STOP DATE: 2008)
     Route: 042
     Dates: start: 2008, end: 2008
  19. DOCETAXEL [Suspect]
     Active Substance: DOCETAXEL
     Indication: Metastases to bone
  20. ERIBULIN [Suspect]
     Active Substance: ERIBULIN
     Indication: Invasive ductal breast carcinoma
     Dosage: 1 DF, QCY, 1 CYCLICAL, (DRUG START AND STOP DATE: 2008)
     Route: 042
     Dates: start: 2008, end: 2008
  21. ERIBULIN [Suspect]
     Active Substance: ERIBULIN
     Indication: Metastases to bone
  22. VINORELBINE TARTRATE [Suspect]
     Active Substance: VINORELBINE TARTRATE
     Indication: Invasive ductal breast carcinoma
     Dosage: 1 DF, QCY, 1 CYCLICAL
     Route: 042
     Dates: start: 2008, end: 2008
  23. VINORELBINE TARTRATE [Suspect]
     Active Substance: VINORELBINE TARTRATE
     Indication: Metastases to bone
  24. LETROZOLE [Concomitant]
     Active Substance: LETROZOLE
     Indication: Metastases to bone
     Dosage: UNK
     Route: 042

REACTIONS (8)
  - Metastases to bone marrow [Unknown]
  - Invasive ductal breast carcinoma [Unknown]
  - Disease progression [Unknown]
  - Malignant neoplasm progression [Unknown]
  - Malignant neoplasm progression [Unknown]
  - Thrombocytopenia [Unknown]
  - Anaemia [Unknown]
  - Product use in unapproved indication [Unknown]
